FAERS Safety Report 9092249 (Version 1)
Quarter: 2013Q1

REPORT INFORMATION
  Report Type: Spontaneous
  Country: ES (occurrence: ES)
  Receive Date: 20130201
  Receipt Date: 20130201
  Transmission Date: 20140127
  Serious: Yes (Hospitalization, Other)
  Sender: FDA-Public Use
  Company Number: ES-ELI_LILLY_AND_COMPANY-ES201301008314

PATIENT
  Age: 50 Year
  Sex: Female

DRUGS (7)
  1. CYMBALTA [Suspect]
     Dosage: 30 MG, QD
     Route: 048
     Dates: start: 2012, end: 20121019
  2. CIPROFLOXACIN [Concomitant]
     Indication: URINARY TRACT INFECTION
     Dosage: 400 MG, BID
     Route: 042
     Dates: start: 20121016, end: 20121017
  3. ATORVASTATIN [Concomitant]
     Dosage: 10 MG, QD
     Route: 048
  4. LORMETAZEPAM [Concomitant]
     Dosage: 2 MG, QD
     Route: 048
  5. ETUMINA [Concomitant]
     Dosage: 20 MG, QD
     Route: 048
     Dates: start: 2012, end: 20121019
  6. TAPENTADOL HYDROCHLORIDE [Concomitant]
     Indication: HERNIA
     Dosage: 100 MG, BID
     Route: 048
     Dates: start: 201205, end: 20121018
  7. SEROQUEL XR [Concomitant]
     Dosage: 600 MG, QD
     Route: 048

REACTIONS (8)
  - Urinary tract infection [Recovered/Resolved]
  - Myoclonus [Recovered/Resolved]
  - Encephalopathy [Unknown]
  - Escherichia bacteraemia [Unknown]
  - Hyponatraemia [Unknown]
  - Dehydration [Recovered/Resolved]
  - Dyskinesia [Recovered/Resolved]
  - Hypoaesthesia [Recovered/Resolved]
